FAERS Safety Report 23516038 (Version 2)
Quarter: 2024Q3

REPORT INFORMATION
  Report Type: Report from Study
  Country: KR (occurrence: KR)
  Receive Date: 20240213
  Receipt Date: 20240718
  Transmission Date: 20241016
  Serious: Yes (Death, Hospitalization)
  Sender: ABBVIE
  Company Number: KR-JNJFOC-20240228020

PATIENT
  Age: 83 Year
  Sex: Female

DRUGS (1)
  1. IBRUTINIB [Suspect]
     Active Substance: IBRUTINIB
     Indication: Mantle cell lymphoma
     Route: 048
     Dates: start: 20211014, end: 20240131

REACTIONS (3)
  - Disseminated intravascular coagulation [Fatal]
  - Sepsis [Fatal]
  - Asthenia [Fatal]
